FAERS Safety Report 7046283-3 (Version None)
Quarter: 2010Q4

REPORT INFORMATION
  Report Type: 
  Country: None (occurrence: None)
  Receive Date: 20101014
  Receipt Date: 20101008
  Transmission Date: 20110411
  Serious: Yes (Hospitalization)
  Sender: FDA-Public Use
  Company Number: B0630007A

PATIENT
  Sex: Female
  Weight: 87 kg

DRUGS (2)
  1. LAPATINIB [Suspect]
     Indication: BREAST CANCER
     Dosage: 1250MG PER DAY
     Route: 048
     Dates: start: 20090930
  2. DOCETAXEL [Suspect]
     Indication: BREAST CANCER
     Dosage: 100MG EVERY 3 WEEKS
     Route: 042
     Dates: start: 20091223

REACTIONS (2)
  - GENERAL PHYSICAL HEALTH DETERIORATION [None]
  - PNEUMONIA [None]
